FAERS Safety Report 14539475 (Version 1)
Quarter: 2018Q1

REPORT INFORMATION
  Report Type: Spontaneous
  Country: US (occurrence: US)
  Receive Date: 20180215
  Receipt Date: 20180215
  Transmission Date: 20180509
  Serious: Yes (Death)
  Sender: FDA-Public Use
  Company Number: None

PATIENT
  Age: 76 Year

DRUGS (1)
  1. WARFARIN [Suspect]
     Active Substance: WARFARIN
     Route: 048

REACTIONS (4)
  - Intraventricular haemorrhage [None]
  - Seizure [None]
  - Hydrocephalus [None]
  - Mental status changes [None]

NARRATIVE: CASE EVENT DATE: 20170204
